FAERS Safety Report 8829124 (Version 2)
Quarter: 2012Q4

REPORT INFORMATION
  Report Type: 
  Country: US (occurrence: US)
  Receive Date: 20121008
  Receipt Date: 20121011
  Transmission Date: 20130627
  Serious: Yes (Other)
  Sender: FDA-Public Use
  Company Number: CHPA2012US020521

PATIENT
  Age: 73 Year
  Sex: Male

DRUGS (4)
  1. EXCEDRIN TENSION HEADACHE [Suspect]
     Indication: HEADACHE
     Dosage: 2 caplets, 4 to 6 times per week
     Route: 048
     Dates: start: 1987
  2. EXCEDRIN UNKNOWN [Suspect]
  3. ASPIRIN ^BAYER^ [Concomitant]
     Dosage: 325 mg, UNK
  4. GABAPENTIN [Concomitant]
     Indication: HEADACHE

REACTIONS (6)
  - Cerebrovascular accident [Not Recovered/Not Resolved]
  - Hernia [Recovered/Resolved]
  - Back disorder [Not Recovered/Not Resolved]
  - Bladder obstruction [Recovered/Resolved]
  - Incorrect drug administration duration [Unknown]
  - Expired drug administered [Unknown]
